FAERS Safety Report 4558341-3 (Version None)
Quarter: 2005Q1

REPORT INFORMATION
  Report Type: 
  Country: None (occurrence: None)
  Receive Date: 20050121
  Receipt Date: 20040519
  Transmission Date: 20050727
  Serious: No
  Sender: FDA-Public Use
  Company Number: US-BRISTOL-MYERS SQUIBB COMPANY-12591012

PATIENT
  Age: 21 Month
  Sex: Female
  Weight: 9 kg

DRUGS (3)
  1. CEFZIL [Suspect]
     Indication: EAR INFECTION
     Route: 048
     Dates: start: 20040518
  2. TYLENOL [Concomitant]
     Indication: PYREXIA
  3. MOTRIN [Concomitant]
     Indication: PYREXIA

REACTIONS (3)
  - FLATULENCE [None]
  - MEDICATION ERROR [None]
  - STOMACH DISCOMFORT [None]
